FAERS Safety Report 12982198 (Version 1)
Quarter: 2016Q4

REPORT INFORMATION
  Report Type: Spontaneous
  Country: PL (occurrence: PL)
  Receive Date: 20161129
  Receipt Date: 20161129
  Transmission Date: 20170207
  Serious: Yes (Hospitalization, Other)
  Sender: FDA-Public Use
  Company Number: PHHY2016PL161297

PATIENT
  Age: 63 Year
  Sex: Female

DRUGS (2)
  1. PAZOPANIB [Suspect]
     Active Substance: PAZOPANIB
     Dosage: 600 MG, UNK
     Route: 065
     Dates: end: 201605
  2. PAZOPANIB [Suspect]
     Active Substance: PAZOPANIB
     Indication: RENAL CELL CARCINOMA
     Dosage: UNK
     Route: 065
     Dates: start: 201404

REACTIONS (8)
  - General physical health deterioration [Not Recovered/Not Resolved]
  - Neoplasm progression [Unknown]
  - Liver function test increased [Unknown]
  - Blood pressure increased [Unknown]
  - Malignant neoplasm progression [Unknown]
  - Epilepsy [Unknown]
  - Thrombocytopenia [Unknown]
  - Anaemia [Unknown]
